FAERS Safety Report 24772862 (Version 1)
Quarter: 2024Q4

REPORT INFORMATION
  Report Type: Spontaneous
  Country: GB (occurrence: GB)
  Receive Date: 20241225
  Receipt Date: 20241225
  Transmission Date: 20250115
  Serious: Yes (Other)
  Sender: TEVA
  Company Number: GB-MHRA-TPP16426517C10186483YC1734081774806

PATIENT
  Age: 43 Year
  Sex: Female
  Weight: 65 kg

DRUGS (6)
  1. SUMATRIPTAN [Suspect]
     Active Substance: SUMATRIPTAN
     Indication: Product used for unknown indication
     Dosage: 100MG TABLETS
     Route: 065
     Dates: start: 20241212
  2. LEVOTHYROXINE [Concomitant]
     Active Substance: LEVOTHYROXINE
     Indication: Product used for unknown indication
     Dosage: MORNING
     Route: 065
     Dates: start: 20240530
  3. CYANOCOBALAMIN [Concomitant]
     Active Substance: CYANOCOBALAMIN
     Indication: Product used for unknown indication
     Route: 065
     Dates: start: 20240917
  4. CALCIUM CARBONATE [Concomitant]
     Active Substance: CALCIUM CARBONATE
     Indication: Product used for unknown indication
     Route: 065
     Dates: start: 20240530
  5. FERRIC MALTOL [Concomitant]
     Active Substance: FERRIC MALTOL
     Indication: Product used for unknown indication
     Route: 065
     Dates: start: 20240917
  6. STEXEROL [Concomitant]
     Indication: Product used for unknown indication
     Route: 065
     Dates: start: 20240530

REACTIONS (3)
  - Chest discomfort [Recovered/Resolved]
  - Paraesthesia [Recovered/Resolved]
  - Bradycardia [Recovered/Resolved]
